FAERS Safety Report 9990701 (Version 1)
Quarter: 2014Q1

REPORT INFORMATION
  Report Type: Spontaneous
  Country: US (occurrence: None)
  Receive Date: 20140307
  Receipt Date: 20140307
  Transmission Date: 20141002
  Serious: Yes (Hospitalization)
  Sender: FDA-Public Use
  Company Number: None

PATIENT
  Age: 60 Year
  Sex: Male
  Weight: 64.7 kg

DRUGS (2)
  1. OXYCODONE [Suspect]
     Indication: PAIN
     Route: 048
     Dates: start: 20130503, end: 20130602
  2. ALPRAZOLAM [Suspect]
     Route: 048

REACTIONS (3)
  - Confusional state [None]
  - Depressed level of consciousness [None]
  - Overdose [None]
